FAERS Safety Report 14507491 (Version 1)
Quarter: 2018Q1

REPORT INFORMATION
  Report Type: Spontaneous
  Country: US (occurrence: US)
  Receive Date: 20180208
  Receipt Date: 20180208
  Transmission Date: 20180509
  Serious: No
  Sender: FDA-Public Use
  Company Number: US-PURDUE-USA-2017-0141604

PATIENT
  Age: 79 Year
  Sex: Male

DRUGS (1)
  1. BUTRANS [Suspect]
     Active Substance: BUPRENORPHINE
     Indication: OFF LABEL USE
     Dosage: 5 MCG/HR, WEEKLY
     Route: 062
     Dates: start: 201710

REACTIONS (9)
  - Pain in extremity [Unknown]
  - Application site erythema [Recovered/Resolved]
  - Application site warmth [Unknown]
  - Off label use [Unknown]
  - Product adhesion issue [Unknown]
  - Application site pain [Unknown]
  - Device leakage [Unknown]
  - Application site pruritus [Unknown]
  - Application site rash [Unknown]

NARRATIVE: CASE EVENT DATE: 201710
